FAERS Safety Report 9640859 (Version 1)
Quarter: 2013Q4

REPORT INFORMATION
  Report Type: Spontaneous
  Country: US (occurrence: US)
  Receive Date: 20131023
  Receipt Date: 20131023
  Transmission Date: 20140711
  Serious: Yes (Other)
  Sender: FDA-Public Use
  Company Number: US-ABBVIE-13P-163-1117810-00

PATIENT
  Age: 24 Year
  Sex: Female
  Weight: 74 kg

DRUGS (7)
  1. LUPRON DEPOT [Suspect]
     Indication: ENDOMETRIOSIS
     Dosage: ONLY RECEIVED 1 INJECTION, IN LEFT GLUTEUS
     Route: 030
     Dates: start: 20130617, end: 20130708
  2. LUPRON DEPOT [Suspect]
     Indication: ENDOMETRIOSIS
     Route: 050
     Dates: start: 2008, end: 2008
  3. PERCOCET [Concomitant]
     Indication: PRODUCT USED FOR UNKNOWN INDICATION
     Dosage: 5/325 MILLIGRAM
     Route: 048
  4. GABAPENTIN [Concomitant]
     Indication: PRODUCT USED FOR UNKNOWN INDICATION
     Dates: end: 201307
  5. GABAPENTIN [Concomitant]
     Dosage: DOSE INCREASED (UNSPECIFIED)
     Dates: start: 201307
  6. CELEXA [Concomitant]
     Indication: PRODUCT USED FOR UNKNOWN INDICATION
  7. DEPOPROVERA [Concomitant]
     Indication: CONTRACEPTION
     Dates: end: 2008

REACTIONS (1)
  - Convulsion [Recovered/Resolved]
